FAERS Safety Report 7415115-3 (Version None)
Quarter: 2011Q2

REPORT INFORMATION
  Report Type: 
  Country: None (occurrence: None)
  Receive Date: 20110414
  Receipt Date: 20110401
  Transmission Date: 20111010
  Serious: Yes (Other)
  Sender: FDA-Public Use
  Company Number: PHHY2011US25847

PATIENT
  Sex: Female

DRUGS (2)
  1. DIOVAN HCT [Suspect]
  2. DIOVAN [Suspect]
     Dosage: 160 MG, QD

REACTIONS (28)
  - BLOOD UREA NITROGEN/CREATININE RATIO INCREASED [None]
  - NASAL CONGESTION [None]
  - BACK PAIN [None]
  - HEADACHE [None]
  - LIP PAIN [None]
  - SUPERFICIAL INJURY OF EYE [None]
  - HYPOTENSION [None]
  - CONFUSIONAL STATE [None]
  - RENAL IMPAIRMENT [None]
  - BLOOD UREA INCREASED [None]
  - DIZZINESS [None]
  - DRUG HYPERSENSITIVITY [None]
  - PRODUCT COLOUR ISSUE [None]
  - GAIT DISTURBANCE [None]
  - DYSURIA [None]
  - WRONG DRUG ADMINISTERED [None]
  - STOMATITIS [None]
  - DYSPNOEA [None]
  - ABDOMINAL PAIN UPPER [None]
  - DRY MOUTH [None]
  - ANAPHYLACTIC REACTION [None]
  - SYNCOPE [None]
  - OEDEMA PERIPHERAL [None]
  - MALAISE [None]
  - DIARRHOEA [None]
  - ANXIETY [None]
  - DRY EYE [None]
  - INSOMNIA [None]
